FAERS Safety Report 18858041 (Version 1)
Quarter: 2021Q1

REPORT INFORMATION
  Report Type: Spontaneous
  Country: US (occurrence: US)
  Receive Date: 20210205
  Receipt Date: 20210205
  Transmission Date: 20210420
  Serious: Yes (Hospitalization)
  Sender: FDA-Public Use
  Company Number: None

PATIENT
  Age: 65 Year
  Sex: Female
  Weight: 116 kg

DRUGS (18)
  1. AZELASTINE NASAL [Concomitant]
  2. CYCLOBENAZAPRINE [Concomitant]
  3. LORATIDINE [Concomitant]
     Active Substance: LORATADINE
  4. MELATONIN [Concomitant]
     Active Substance: MELATONIN
  5. ROPINIROLE. [Concomitant]
     Active Substance: ROPINIROLE
  6. VILAZODONE [Concomitant]
     Active Substance: VILAZODONE
  7. TRAZODONE [Concomitant]
     Active Substance: TRAZODONE HYDROCHLORIDE
  8. ZOLPIDEM [Concomitant]
     Active Substance: ZOLPIDEM TARTRATE
  9. BACILLUS PROBIOTIC [Concomitant]
  10. CALCIUM/VITAMIN D [Concomitant]
     Active Substance: CALCIUM\VITAMIN D
  11. GABAPENTIN. [Concomitant]
     Active Substance: GABAPENTIN
  12. INDAPAMIDE. [Concomitant]
     Active Substance: INDAPAMIDE
  13. BAMLANIVIMAB FOR EUA [Suspect]
     Active Substance: BAMLANIVIMAB
     Indication: COVID-19
     Route: 042
     Dates: start: 20201208, end: 20210108
  14. DEXLANSOPRAZOLE [Concomitant]
     Active Substance: DEXLANSOPRAZOLE
  15. DICYCLOMINE [Concomitant]
     Active Substance: DICYCLOMINE HYDROCHLORIDE
  16. FAMOTIDINE. [Concomitant]
     Active Substance: FAMOTIDINE
  17. LINACLOTIDE [Concomitant]
     Active Substance: LINACLOTIDE
  18. MONTELUKAST [Concomitant]
     Active Substance: MONTELUKAST SODIUM

REACTIONS (15)
  - Chromaturia [None]
  - Cough [None]
  - Abdominal pain lower [None]
  - Respiratory rate increased [None]
  - Blood pressure systolic increased [None]
  - Dysuria [None]
  - Oxygen saturation decreased [None]
  - Haematuria [None]
  - Dyspnoea [None]
  - White blood cells urine positive [None]
  - Nitrite urine present [None]
  - Dizziness [None]
  - Fatigue [None]
  - Urine abnormality [None]
  - Headache [None]

NARRATIVE: CASE EVENT DATE: 20210115
